FAERS Safety Report 5276108-8 (Version None)
Quarter: 2007Q1

REPORT INFORMATION
  Report Type: 
  Country: None (occurrence: None)
  Receive Date: 20070326
  Receipt Date: 20070316
  Transmission Date: 20070707
  Serious: No
  Sender: FDA-Public Use
  Company Number: 2007GB00310

PATIENT
  Sex: Female
  Weight: 81.8 kg

DRUGS (2)
  1. SEROQUEL [Suspect]
     Indication: DEPRESSION
     Route: 048
     Dates: start: 20060201
  2. DULOXETINE [Concomitant]
     Route: 048

REACTIONS (2)
  - FATIGUE [None]
  - MACROCYTOSIS [None]
